FAERS Safety Report 17907157 (Version 1)
Quarter: 2020Q2

REPORT INFORMATION
  Report Type: Spontaneous
  Country: US (occurrence: US)
  Receive Date: 20200617
  Receipt Date: 20200617
  Transmission Date: 20200714
  Serious: Yes (Hospitalization, Other)
  Sender: FDA-Public Use
  Company Number: None

PATIENT
  Age: 89 Year
  Sex: Male
  Weight: 89.1 kg

DRUGS (13)
  1. ELIQUIS 2.5MG BID [Concomitant]
     Dates: start: 20190214
  2. EPLERENONE 25MG QD [Concomitant]
     Dates: start: 20180119
  3. SYNTHROID 150MCG ALTERNATING 175MCG QD [Concomitant]
     Dates: start: 20160307
  4. FOLBEE [Concomitant]
     Active Substance: CYANOCOBALAMIN\FOLIC ACID\PYRIDOXINE HYDROCHLORIDE
  5. FLOMAX 0.4MG [Concomitant]
     Dates: start: 20200608
  6. VYNDAMAX [Suspect]
     Active Substance: TAFAMIDIS
     Indication: CARDIOMYOPATHY
     Route: 048
     Dates: start: 20200402
  7. BUMETANIDE 2MG, 3 DAYS PER WEEK [Concomitant]
     Dates: start: 20190115
  8. ROSUVASTATIN 10MG 4 TIMES A WEEK [Concomitant]
     Dates: start: 20180402
  9. GLUCOSAMINE CHONDROTIN [Concomitant]
     Active Substance: CHONDROITIN SULFATE (BOVINE)\GLUCOSAMINE SULFATE
  10. TORSEMIDE 10MG QD [Concomitant]
     Dates: start: 20200615
  11. MULTIVITAMIN [Concomitant]
     Active Substance: VITAMINS
  12. VITAMIN D3 2000IU QD [Concomitant]
  13. COQ10 [Concomitant]
     Active Substance: UBIDECARENONE

REACTIONS (3)
  - Spinal compression fracture [None]
  - Pathological fracture [None]
  - Pelvic fracture [None]

NARRATIVE: CASE EVENT DATE: 20200331
